FAERS Safety Report 20163595 (Version 1)
Quarter: 2021Q4

REPORT INFORMATION
  Report Type: Spontaneous
  Country: US (occurrence: US)
  Receive Date: 20211209
  Receipt Date: 20211209
  Transmission Date: 20220303
  Serious: Yes (Other)
  Sender: FDA-Public Use
  Company Number: US-SPECGX-T202102654

PATIENT
  Age: 65 Year
  Sex: Male

DRUGS (16)
  1. HYDROMORPHONE [Suspect]
     Active Substance: HYDROMORPHONE
     Indication: Analgesic therapy
     Dosage: UNK
     Route: 065
  2. PAMELOR [Suspect]
     Active Substance: NORTRIPTYLINE HYDROCHLORIDE
     Indication: Rectal tenesmus
     Dosage: UNK
     Route: 065
  3. PAMELOR [Suspect]
     Active Substance: NORTRIPTYLINE HYDROCHLORIDE
     Indication: Analgesic therapy
  4. ACETAMINOPHEN\OXYCODONE HYDROCHLORIDE [Suspect]
     Active Substance: ACETAMINOPHEN\OXYCODONE HYDROCHLORIDE
     Indication: Analgesic therapy
     Dosage: UNK
     Route: 065
  5. ACETAMINOPHEN\HYDROCODONE [Suspect]
     Active Substance: ACETAMINOPHEN\HYDROCODONE
     Indication: Analgesic therapy
     Dosage: UNK
     Route: 065
  6. LIDOCAINE [Suspect]
     Active Substance: LIDOCAINE
     Indication: Analgesic therapy
     Dosage: UNK
     Route: 065
  7. TYLENOL WITH CODEINE [Suspect]
     Active Substance: ACETAMINOPHEN\CODEINE PHOSPHATE
     Indication: Analgesic therapy
     Dosage: UNK
     Route: 065
  8. GABAPENTIN [Suspect]
     Active Substance: GABAPENTIN
     Indication: Analgesic therapy
     Dosage: UNK
     Route: 065
  9. ALLOPURINOL [Concomitant]
     Active Substance: ALLOPURINOL
     Indication: Product used for unknown indication
     Dosage: 100 MILLIGRAM, QD
     Route: 065
  10. ASPIRIN [Concomitant]
     Active Substance: ASPIRIN
     Indication: Product used for unknown indication
     Dosage: 81 MILLIGRAM, QD
     Route: 065
  11. CLONAZEPAM [Concomitant]
     Active Substance: CLONAZEPAM
     Indication: Product used for unknown indication
     Dosage: 3 MILLIGRAM, QHS
     Route: 065
  12. HYDROCHLOROTHIAZIDE;OLMESARTAN [Concomitant]
     Indication: Product used for unknown indication
     Dosage: 40-MG/12.5-MG DAILY
     Route: 065
  13. ALEVE [Concomitant]
     Active Substance: NAPROXEN SODIUM
     Indication: Proctalgia
     Dosage: UNK
     Route: 065
  14. BACTRIM DS [Concomitant]
     Active Substance: SULFAMETHOXAZOLE\TRIMETHOPRIM
     Indication: Prostatitis
     Dosage: 1 DOSAGE FORM, BID (FOR 6 WEEKS)
     Route: 065
  15. DULCOLAX (BISACODYL) [Concomitant]
     Active Substance: BISACODYL
     Indication: Constipation
     Dosage: UNK (AS NEEDED)
     Route: 065
  16. GLYCERIN [Concomitant]
     Active Substance: GLYCERIN
     Indication: Constipation
     Dosage: UNK (AS NEEDED)
     Route: 065

REACTIONS (3)
  - Suicide attempt [Unknown]
  - Intentional overdose [Unknown]
  - Drug ineffective for unapproved indication [Unknown]
